FAERS Safety Report 14335951 (Version 1)
Quarter: 2017Q4

REPORT INFORMATION
  Report Type: Spontaneous
  Country: FR (occurrence: FR)
  Receive Date: 20171229
  Receipt Date: 20171229
  Transmission Date: 20180321
  Serious: Yes (Other)
  Sender: FDA-Public Use
  Company Number: FR-BAYER-2017-246974

PATIENT
  Age: 31 Year
  Sex: Female
  Weight: 78 kg

DRUGS (1)
  1. MIRENA [Suspect]
     Active Substance: LEVONORGESTREL
     Indication: CONTRACEPTION
     Dosage: 20 MCG/24HR, CONT
     Route: 015

REACTIONS (9)
  - Sleep disorder [Unknown]
  - Apnoea [Unknown]
  - Migraine [Unknown]
  - Memory impairment [Unknown]
  - Disturbance in attention [Unknown]
  - Alopecia [Unknown]
  - Pain [Unknown]
  - Fatigue [Unknown]
  - Tendonitis [Unknown]

NARRATIVE: CASE EVENT DATE: 1991
